FAERS Safety Report 16626194 (Version 3)
Quarter: 2019Q3

REPORT INFORMATION
  Report Type: Spontaneous
  Country: PL (occurrence: PL)
  Receive Date: 20190724
  Receipt Date: 20190904
  Transmission Date: 20191004
  Serious: Yes (Death, Other)
  Sender: FDA-Public Use
  Company Number: PL-GE HEALTHCARE LIFE SCIENCES-2019CSU003797

PATIENT

DRUGS (10)
  1. OMNIPAQUE [Suspect]
     Active Substance: IOHEXOL
     Indication: ANGIOGRAM CEREBRAL
     Dosage: 60 ML, SINGLE
     Route: 042
     Dates: start: 20190712, end: 20190712
  2. OMNIPAQUE [Suspect]
     Active Substance: IOHEXOL
     Indication: HEMIPLEGIA
  3. OMNIPAQUE [Suspect]
     Active Substance: IOHEXOL
     Indication: APHASIA
  4. ACTILYSE [Suspect]
     Active Substance: ALTEPLASE
     Indication: CEREBRAL INFARCTION
     Dosage: 72 MG, UNK
     Route: 040
     Dates: start: 20190712, end: 20190712
  5. OMNIPAQUE [Suspect]
     Active Substance: IOHEXOL
     Indication: CEREBROVASCULAR ACCIDENT
  6. OMNIPAQUE [Suspect]
     Active Substance: IOHEXOL
     Indication: CEREBRAL INFARCTION
  7. OMNIPAQUE [Suspect]
     Active Substance: IOHEXOL
     Indication: COMPUTERISED TOMOGRAM
  8. OMNIPAQUE [Suspect]
     Active Substance: IOHEXOL
     Indication: ANGIOGRAM
  9. ACTILYSE [Suspect]
     Active Substance: ALTEPLASE
     Indication: THROMBOLYSIS
  10. EBRANTIL [Concomitant]
     Active Substance: URAPIDIL
     Dosage: 25 MG, (1/2 AMPOULE) TWICE
     Dates: start: 20190712, end: 20190712

REACTIONS (6)
  - Cardiac arrest [Fatal]
  - Blister [Unknown]
  - Oedema mouth [Unknown]
  - Erythema [Unknown]
  - Pulseless electrical activity [Fatal]
  - Tongue oedema [Unknown]

NARRATIVE: CASE EVENT DATE: 20190712
